FAERS Safety Report 9586316 (Version 2)
Quarter: 2013Q4

REPORT INFORMATION
  Report Type: Spontaneous
  Country: BR (occurrence: BR)
  Receive Date: 20131003
  Receipt Date: 20131101
  Transmission Date: 20140711
  Serious: Yes (Death, Hospitalization, Other)
  Sender: FDA-Public Use
  Company Number: PHHY2013BR109583

PATIENT
  Age: 90 Year
  Sex: Female

DRUGS (3)
  1. FORASEQ [Suspect]
     Indication: ASTHMA
     Dosage: 1 DF, BID
  2. FORASEQ [Suspect]
     Indication: WHEEZING
  3. FORASEQ [Suspect]
     Indication: FATIGUE

REACTIONS (4)
  - Ophthalmic herpes zoster [Fatal]
  - Pneumonia [Fatal]
  - Nosocomial infection [Fatal]
  - Device malfunction [Unknown]
